FAERS Safety Report 8369704-2 (Version None)
Quarter: 2012Q2

REPORT INFORMATION
  Report Type: 
  Country: None (occurrence: None)
  Receive Date: 20120518
  Receipt Date: 20120511
  Transmission Date: 20120825
  Serious: Yes (Hospitalization)
  Sender: FDA-Public Use
  Company Number: JP-BRISTOL-MYERS SQUIBB COMPANY-16536500

PATIENT
  Age: 74 Year
  Sex: Female

DRUGS (5)
  1. AMLODIPINE BESYLATE [Concomitant]
     Indication: HYPERTENSION
     Dosage: 2004-04APR12(8YEARS),09APR12-ONG
     Route: 048
     Dates: start: 20040101
  2. METFORMIN HCL [Suspect]
     Indication: DIABETES MELLITUS
     Dosage: DOSE:500MG
     Route: 048
     Dates: start: 20111124, end: 20120404
  3. JANUVIA [Suspect]
     Indication: DIABETES MELLITUS
     Dosage: DOSE:100MG
     Route: 048
     Dates: start: 20110613, end: 20120404
  4. AMARYL [Concomitant]
     Indication: DIABETES MELLITUS
     Dosage: 24JUL12-04APR12,09APR12-ONG STARTED WITH HALF DOSAGE
     Route: 048
     Dates: start: 20060724
  5. ASPIRIN [Concomitant]
     Indication: CEREBRAL INFARCTION
     Dosage: 2004-04APR12(8YEARS),09APR12-ONG
     Route: 048
     Dates: start: 20040101

REACTIONS (2)
  - JAUNDICE [None]
  - HEPATIC FUNCTION ABNORMAL [None]
